FAERS Safety Report 4893398-1 (Version None)
Quarter: 2006Q1

REPORT INFORMATION
  Report Type: 
  Country: None (occurrence: None)
  Receive Date: 20060120
  Receipt Date: 20060112
  Transmission Date: 20060701
  Serious: Yes (Other)
  Sender: FDA-Public Use
  Company Number: HQWYE196024OCT05

PATIENT
  Age: 60 Year
  Sex: Male

DRUGS (11)
  1. BENEFIX [Suspect]
     Indication: FACTOR IX DEFICIENCY
     Dosage: SEE IMAGE
     Dates: start: 20041018, end: 20041018
  2. BENEFIX [Suspect]
     Indication: FACTOR IX DEFICIENCY
     Dosage: SEE IMAGE
     Dates: start: 20041025, end: 20041025
  3. BENEFIX [Suspect]
     Indication: FACTOR IX DEFICIENCY
     Dosage: SEE IMAGE
     Dates: start: 20041111, end: 20041111
  4. BENEFIX [Suspect]
     Indication: FACTOR IX DEFICIENCY
     Dosage: SEE IMAGE
     Dates: start: 20041028
  5. BENEFIX [Suspect]
  6. EPIVIR [Concomitant]
  7. ZERIT [Concomitant]
  8. SUSTIVA [Concomitant]
  9. GLUCOPHAGE [Concomitant]
  10. GLUCOTROL [Concomitant]
  11. NORTRIPTYLINE HCL [Concomitant]

REACTIONS (2)
  - DRUG INEFFECTIVE [None]
  - HAEMATURIA [None]
